FAERS Safety Report 9729925 (Version 3)
Quarter: 2014Q2

REPORT INFORMATION
  Report Type: Spontaneous
  Country: AU (occurrence: None)
  Receive Date: 20131203
  Receipt Date: 20140421
  Transmission Date: 20141212
  Serious: Yes (Hospitalization, Other)
  Sender: FDA-Public Use
  Company Number: AUR-APL-2013-09805

PATIENT
  Sex: Male
  Weight: 4.2 kg

DRUGS (3)
  1. QUETIAPINE [Suspect]
     Indication: BIPOLAR DISORDER
     Dosage: (600 MG,1 D),TRANSPLACENTAL
     Route: 064
  2. PHENELZINE [Suspect]
     Indication: BIPOLAR DISORDER
     Dosage: (105 MG,1 D),TRANSPLACENTAL
     Route: 064
  3. LITHIUM [Suspect]
     Indication: BIPOLAR DISORDER
     Dosage: 1 D
     Route: 064

REACTIONS (8)
  - Maternal drugs affecting foetus [None]
  - Macrosomia [None]
  - Tachycardia foetal [None]
  - Foetal hypokinesia [None]
  - Obstructed labour [None]
  - Caesarean section [None]
  - Muscle twitching [None]
  - Drug withdrawal syndrome neonatal [None]
